FAERS Safety Report 6929837-1 (Version None)
Quarter: 2010Q3

REPORT INFORMATION
  Report Type: 
  Country: None (occurrence: None)
  Receive Date: 20100817
  Receipt Date: 20100817
  Transmission Date: 20110219
  Serious: Yes (Other)
  Sender: FDA-Public Use
  Company Number: None

PATIENT
  Sex: Female
  Weight: 68.0396 kg

DRUGS (1)
  1. CIPRO [Suspect]
     Indication: DIVERTICULITIS
     Dosage: 500 MG 2X DAY MOUTH

REACTIONS (18)
  - AMNESIA [None]
  - APHAGIA [None]
  - BALANCE DISORDER [None]
  - CONFUSIONAL STATE [None]
  - DIZZINESS [None]
  - FATIGUE [None]
  - GAIT DISTURBANCE [None]
  - HYPERSENSITIVITY [None]
  - LABORATORY TEST ABNORMAL [None]
  - LETHARGY [None]
  - OROPHARYNGEAL PAIN [None]
  - PRURITUS [None]
  - STOMATITIS [None]
  - TENDONITIS [None]
  - THROAT TIGHTNESS [None]
  - TREMOR [None]
  - VISUAL FIELD DEFECT [None]
  - WEIGHT DECREASED [None]
